FAERS Safety Report 9012229 (Version 1)
Quarter: 2013Q1

REPORT INFORMATION
  Report Type: Spontaneous
  Country: US (occurrence: US)
  Receive Date: 20130114
  Receipt Date: 20130114
  Transmission Date: 20140127
  Serious: Yes (Hospitalization)
  Sender: FDA-Public Use
  Company Number: US-ELI_LILLY_AND_COMPANY-US201301002207

PATIENT
  Age: 50 Year
  Sex: Male

DRUGS (4)
  1. CYMBALTA [Suspect]
     Indication: DEPRESSION
     Dosage: 120 MG, UNKNOWN
     Dates: start: 201208, end: 201211
  2. OXYCONTIN [Concomitant]
     Indication: PAIN
     Dosage: 80 MG, UNKNOWN
     Dates: start: 201108
  3. HUMALOG [Concomitant]
     Indication: DIABETES MELLITUS
     Dosage: 20 U, UNKNOWN
  4. VICODIN [Concomitant]
     Indication: PAIN
     Dosage: 1 DF, UNKNOWN

REACTIONS (2)
  - Psychotic disorder [Recovered/Resolved]
  - Mania [Recovered/Resolved]
